FAERS Safety Report 14754926 (Version 1)
Quarter: 2018Q2

REPORT INFORMATION
  Report Type: Report from Study
  Country: None (occurrence: GB)
  Receive Date: 20180413
  Receipt Date: 20180413
  Transmission Date: 20180711
  Serious: Yes (Other)
  Sender: FDA-Public Use
  Company Number: GB-ABBVIE-18K-167-2321180-00

PATIENT
  Sex: Male

DRUGS (1)
  1. HUMIRA [Suspect]
     Active Substance: ADALIMUMAB
     Indication: PSORIASIS
     Route: 058
     Dates: start: 20170824, end: 201802

REACTIONS (2)
  - Psoriasis [Unknown]
  - Drug-induced liver injury [Recovered/Resolved]

NARRATIVE: CASE EVENT DATE: 2018
